FAERS Safety Report 7400976-4 (Version None)
Quarter: 2011Q2

REPORT INFORMATION
  Report Type: 
  Country: None (occurrence: None)
  Receive Date: 20110407
  Receipt Date: 20110404
  Transmission Date: 20111010
  Serious: Yes (Death, Other)
  Sender: FDA-Public Use
  Company Number: US-TEVA-255239USA

PATIENT
  Sex: Female

DRUGS (2)
  1. CONTRACEPTIVES NOS [Concomitant]
  2. AVIANE-21 [Suspect]
     Indication: METRORRHAGIA
     Dates: start: 20100101

REACTIONS (2)
  - COMPLETED SUICIDE [None]
  - DEPRESSION [None]
